FAERS Safety Report 6257919-9 (Version None)
Quarter: 2009Q3

REPORT INFORMATION
  Report Type: 
  Country: None (occurrence: None)
  Receive Date: 20090707
  Receipt Date: 20090629
  Transmission Date: 20100115
  Serious: Yes (Other)
  Sender: FDA-Public Use
  Company Number: ES-PFIZER INC-2009163504

PATIENT
  Age: 57 Year

DRUGS (1)
  1. CELEBREX [Suspect]
     Indication: OSTEOARTHRITIS
     Dosage: 200 MG, 1X/DAY
     Route: 048
     Dates: start: 20081003, end: 20081020

REACTIONS (7)
  - BLOOD PRESSURE SYSTOLIC INCREASED [None]
  - COUGH [None]
  - DYSPNOEA [None]
  - GLOMERULONEPHRITIS MEMBRANOUS [None]
  - OEDEMA PERIPHERAL [None]
  - PALPITATIONS [None]
  - WEIGHT INCREASED [None]
